FAERS Safety Report 17225949 (Version 1)
Quarter: 2019Q4

REPORT INFORMATION
  Report Type: Spontaneous
  Country: US (occurrence: US)
  Receive Date: 20191210
  Receipt Date: 20191210
  Transmission Date: 20200122
  Serious: Yes (Death)
  Sender: FDA-Public Use
  Company Number: None

PATIENT
  Age: 70 Year
  Sex: Female

DRUGS (1)
  1. CAPECITABINE 500MG [Suspect]
     Active Substance: CAPECITABINE
     Indication: BREAST CANCER
     Dosage: ?          OTHER DOSE:4 TABLETS;?
     Route: 048
     Dates: start: 20191125, end: 20191204

REACTIONS (1)
  - Disease progression [None]

NARRATIVE: CASE EVENT DATE: 20191204
